FAERS Safety Report 8563588-5 (Version None)
Quarter: 2012Q3

REPORT INFORMATION
  Report Type: 
  Country: None (occurrence: None)
  Receive Date: 20120803
  Receipt Date: 20120726
  Transmission Date: 20120928
  Serious: Yes (Life-Threatening, Hospitalization)
  Sender: FDA-Public Use
  Company Number: AU-009507513-2012SP024879

PATIENT

DRUGS (5)
  1. TEMOZOLOMIDE [Suspect]
     Indication: GLIOMA
     Dosage: 300 MG, UNKNOWN
     Route: 048
     Dates: start: 20111114, end: 20120116
  2. ALLOPURINOL [Concomitant]
     Indication: GOUT
     Dosage: UPDATE (21MAY2012)
     Route: 048
     Dates: start: 20080307
  3. DEXAMETHASONE [Concomitant]
     Indication: ASTROCYTOMA
     Dosage: 0.5 MG, QOD
     Route: 048
     Dates: start: 20080122
  4. PANTOPRAZOLE [Concomitant]
     Indication: GASTROOESOPHAGEAL REFLUX DISEASE
     Dosage: UPDATE (21MAY2012)
     Route: 048
     Dates: start: 20080129
  5. LEVETIRACETAM [Concomitant]
     Indication: CONVULSION
     Dosage: UPDATE (21MAY2012)
     Route: 048
     Dates: start: 20110721

REACTIONS (1)
  - PULMONARY EMBOLISM [None]
